FAERS Safety Report 8128707-3 (Version None)
Quarter: 2012Q1

REPORT INFORMATION
  Report Type: 
  Country: None (occurrence: None)
  Receive Date: 20120210
  Receipt Date: 20110121
  Transmission Date: 20120608
  Serious: No
  Sender: FDA-Public Use
  Company Number: US-BRISTOL-MYERS SQUIBB COMPANY-15496524

PATIENT
  Age: 53 Year
  Sex: Female

DRUGS (1)
  1. ORENCIA [Suspect]
     Indication: RHEUMATOID ARTHRITIS
     Dosage: 750MG IN 15MIN INSTEAD OF 30 MIN
     Route: 042
     Dates: start: 20080101

REACTIONS (3)
  - DRUG ADMINISTRATION ERROR [None]
  - BLOOD PRESSURE INCREASED [None]
  - DIZZINESS [None]
